FAERS Safety Report 4399779-7 (Version None)
Quarter: 2004Q3

REPORT INFORMATION
  Report Type: 
  Country: None (occurrence: None)
  Receive Date: 20040714
  Receipt Date: 20040623
  Transmission Date: 20050211
  Serious: Yes (Hospitalization)
  Sender: FDA-Public Use
  Company Number: JP_040603590

PATIENT
  Sex: Male
  Weight: 1 kg

DRUGS (11)
  1. VANCOMYCIN [Suspect]
     Indication: INFECTION
  2. SURFACTANT [Concomitant]
  3. CEFTAZIDIME [Concomitant]
  4. AMPICILLIN [Concomitant]
  5. GALENIC /'PANIPENEM/BETAMIPRON [Concomitant]
  6. AMIKACIN [Concomitant]
  7. CEFOZOPRAN [Concomitant]
  8. AZTREONAM [Concomitant]
  9. IMMUNE GLOBULIN INTRAVENOUS (HUMAN) [Concomitant]
  10. INDACIN (IDOMETACIN) [Concomitant]
  11. MICONAZOLE [Concomitant]

REACTIONS (19)
  - BLOOD BETA-D-GLUCAN INCREASED [None]
  - CANDIDIASIS [None]
  - CHEST X-RAY ABNORMAL [None]
  - CULTURE STOOL POSITIVE [None]
  - DISSEMINATED INTRAVASCULAR COAGULATION [None]
  - HERPES SIMPLEX [None]
  - IRRITABILITY [None]
  - LIP BLISTER [None]
  - LUNG HERNIA [None]
  - MUCOSAL EROSION [None]
  - MUSCLE SPASMS [None]
  - NEONATAL DISORDER [None]
  - NUCLEAR MAGNETIC RESONANCE IMAGING BRAIN ABNORMAL [None]
  - PANCYTOPENIA [None]
  - RENAL FAILURE NEONATAL [None]
  - SCAB [None]
  - SCAR [None]
  - SEPTIC SHOCK [None]
  - SKIN ULCER [None]
